FAERS Safety Report 8313300-X (Version None)
Quarter: 2012Q1

REPORT INFORMATION
  Report Type: 
  Country: None (occurrence: None)
  Receive Date: 20120315
  Receipt Date: 20110617
  Transmission Date: 20120608
  Serious: No
  Sender: FDA-Public Use
  Company Number: PHHY2011US16215

PATIENT
  Age: 61 Year
  Sex: Female

DRUGS (6)
  1. ZOCOR [Concomitant]
  2. GILENYA [Suspect]
     Indication: MULTIPLE SCLEROSIS
     Dosage: 0.5 MG, QD, ORAL
     Route: 048
     Dates: start: 20110218
  3. SERTRALINE HYDROCHLORIDE [Concomitant]
  4. PREMARIN [Concomitant]
  5. SYNTHROID [Concomitant]
  6. BENZORATATE [Concomitant]

REACTIONS (3)
  - OVERDOSE [None]
  - MEMORY IMPAIRMENT [None]
  - RASH [None]
